FAERS Safety Report 5378915-X (Version None)
Quarter: 2007Q3

REPORT INFORMATION
  Report Type: 
  Country: None (occurrence: None)
  Receive Date: 20070705
  Receipt Date: 20070622
  Transmission Date: 20080115
  Serious: Yes (Life-Threatening, Hospitalization, Other)
  Sender: FDA-Public Use
  Company Number: DE-AMGEN-US232068

PATIENT
  Sex: Female
  Weight: 60 kg

DRUGS (6)
  1. ENBREL [Suspect]
     Indication: RHEUMATOID ARTHRITIS
     Route: 058
     Dates: start: 20030201, end: 20070101
  2. ENBREL [Suspect]
     Route: 058
     Dates: end: 20070503
  3. PRAVASTATIN [Concomitant]
  4. GODAMED [Concomitant]
  5. DECORTIN-H [Concomitant]
     Indication: RHEUMATOID ARTHRITIS
     Dosage: 0.5 - 1MG DAILY
     Route: 048
     Dates: start: 19940101
  6. ENALAPRIL [Concomitant]

REACTIONS (5)
  - ARTHRITIS BACTERIAL [None]
  - ATRIOVENTRICULAR BLOCK FIRST DEGREE [None]
  - SINUSITIS [None]
  - STREPTOCOCCAL INFECTION [None]
  - TONSILLITIS [None]
